FAERS Safety Report 5815253-2 (Version None)
Quarter: 2008Q3

REPORT INFORMATION
  Report Type: 
  Country: None (occurrence: None)
  Receive Date: 20080718
  Receipt Date: 20080715
  Transmission Date: 20090109
  Serious: Yes (Other)
  Sender: FDA-Public Use
  Company Number: JP-BOEHRINGER INGELHEIM GMBH, GERMANY-2008-BP-10747YA

PATIENT
  Sex: Male

DRUGS (5)
  1. TAMSULOSIN HCL [Suspect]
     Indication: BENIGN PROSTATIC HYPERPLASIA
     Route: 048
     Dates: start: 20080529, end: 20080608
  2. LEUPROLIDE ACETATE [Concomitant]
     Dates: start: 20080305
  3. TS 1 [Concomitant]
     Route: 048
     Dates: start: 20080131
  4. GASMOTIN [Concomitant]
     Route: 048
     Dates: start: 20080111
  5. DAIKENTYUTO [Concomitant]
     Route: 048
     Dates: start: 20080131

REACTIONS (2)
  - DIZZINESS [None]
  - FALL [None]
